FAERS Safety Report 9299990 (Version 5)
Quarter: 2013Q4

REPORT INFORMATION
  Report Type: Spontaneous
  Country: US (occurrence: None)
  Receive Date: 20121227
  Receipt Date: 20131226
  Transmission Date: 20140711
  Serious: Yes (Other)
  Sender: FDA-Public Use
  Company Number: PHEH2012US023318

PATIENT
  Age: 78 Year
  Sex: Female
  Weight: 67.1 kg

DRUGS (6)
  1. AFINITOR [Suspect]
     Indication: BREAST CANCER METASTATIC
     Route: 048
     Dates: start: 20120725, end: 20120829
  2. EXEMESTANE (EXEMESTANE) [Concomitant]
  3. NORVASC (AMLODIPINE BESILATE) [Concomitant]
  4. EFFEXOR (VENLAFAXINE HYDROCHLORIDE) UNKNOWN [Concomitant]
  5. PLAVIX (CLOPIDOGREL BISULFATE) (CLOPIDOGREL BISULFATE) [Concomitant]
  6. BISOPROLOL (BISOPROLOL) [Concomitant]

REACTIONS (4)
  - Pneumonitis [None]
  - Dyspnoea [None]
  - Pleural fibrosis [None]
  - Pleural effusion [None]
